FAERS Safety Report 18712731 (Version 1)
Quarter: 2021Q1

REPORT INFORMATION
  Report Type: Spontaneous
  Country: US (occurrence: US)
  Receive Date: 20210107
  Receipt Date: 20210107
  Transmission Date: 20210419
  Serious: No
  Sender: FDA-Public Use
  Company Number: None

PATIENT
  Age: 74 Year
  Sex: Female
  Weight: 73.71 kg

DRUGS (10)
  1. EVEROLIMUS. [Suspect]
     Active Substance: EVEROLIMUS
     Indication: UTERINE CANCER
     Route: 048
     Dates: start: 20200711
  2. CARVEDILOL 25MG [Concomitant]
     Active Substance: CARVEDILOL
  3. FUROSEMIDE 40MG [Concomitant]
     Active Substance: FUROSEMIDE
  4. VITAMIN C [Concomitant]
     Active Substance: ASCORBIC ACID
  5. ZINC. [Concomitant]
     Active Substance: ZINC
  6. HYDRALAZINE 25MG [Concomitant]
     Active Substance: HYDRALAZINE HYDROCHLORIDE
  7. ISOSORBIDE DINITRATE 10MG [Concomitant]
  8. VITAMIN B [Concomitant]
     Active Substance: VITAMIN B
  9. COD LIVER OIL [Concomitant]
     Active Substance: COD LIVER OIL
  10. VITAMIN D3 1000IU [Concomitant]

REACTIONS (2)
  - Disease progression [None]
  - Metastatic gastric cancer [None]

NARRATIVE: CASE EVENT DATE: 20210107
